FAERS Safety Report 5107043-3 (Version None)
Quarter: 2006Q3

REPORT INFORMATION
  Report Type: 
  Country: None (occurrence: None)
  Receive Date: 20060913
  Receipt Date: 20060818
  Transmission Date: 20061208
  Serious: Yes (Other)
  Sender: FDA-Public Use
  Company Number: 2006RR-03612

PATIENT
  Age: 10 Month
  Sex: Male

DRUGS (3)
  1. MIDAZOLAM HYDROCHLORIDE [Suspect]
     Indication: SEDATION
  2. FENTANYL [Suspect]
     Indication: SEDATION
  3. VECURONIUM (VERCURONIUM) [Suspect]
     Indication: SEDATION

REACTIONS (6)
  - CEREBRAL ATROPHY [None]
  - CEREBRAL HYPOPERFUSION [None]
  - DYSKINESIA [None]
  - EYE MOVEMENT DISORDER [None]
  - MYOCLONUS [None]
  - TREMOR [None]
